FAERS Safety Report 6447461-4 (Version None)
Quarter: 2009Q4

REPORT INFORMATION
  Report Type: 
  Country: None (occurrence: None)
  Receive Date: 20091119
  Receipt Date: 20091116
  Transmission Date: 20100525
  Serious: Yes (Death)
  Sender: FDA-Public Use
  Company Number: JP-ELI_LILLY_AND_COMPANY-JP200907006299

PATIENT
  Age: 70 Year
  Sex: Male
  Weight: 63 kg

DRUGS (8)
  1. GEMZAR [Suspect]
     Indication: LUNG SQUAMOUS CELL CARCINOMA STAGE UNSPECIFIED
     Dosage: 1700 MG, UNK
     Route: 042
     Dates: start: 20090707
  2. TAXOTERE [Concomitant]
     Indication: LUNG SQUAMOUS CELL CARCINOMA STAGE UNSPECIFIED
     Dosage: 100 MG, UNK
     Route: 042
     Dates: start: 20090611, end: 20090611
  3. ENALAPRIL /00574902/ [Concomitant]
     Dosage: UNK, UNK
     Route: 048
     Dates: start: 20090612
  4. PARIET [Concomitant]
     Route: 048
  5. MAGMITT [Concomitant]
     Route: 048
  6. MEDICON /00048102/ [Concomitant]
     Route: 048
  7. NAIXAN [Concomitant]
     Route: 048
  8. FRANDOL [Concomitant]
     Indication: MYOCARDIAL ISCHAEMIA
     Route: 062
     Dates: start: 20090612

REACTIONS (1)
  - MYOCARDIAL INFARCTION [None]
